FAERS Safety Report 5621947-4 (Version None)
Quarter: 2008Q1

REPORT INFORMATION
  Report Type: 
  Country: None (occurrence: None)
  Receive Date: 20080211
  Receipt Date: 20080207
  Transmission Date: 20080703
  Serious: Yes (Hospitalization)
  Sender: FDA-Public Use
  Company Number: A0701530B

PATIENT
  Age: 23 Year
  Sex: Female

DRUGS (6)
  1. LAMOTRIGINE [Suspect]
     Indication: BIPOLAR DISORDER
     Dosage: 200MG PER DAY
     Route: 048
     Dates: start: 20040407
  2. SEROQUEL [Concomitant]
     Dosage: 500MG PER DAY
     Route: 048
  3. EFFEXOR [Concomitant]
     Dosage: 112.5MG PER DAY
     Route: 048
  4. METHYLDOPA [Concomitant]
     Indication: HYPERTENSION
     Dosage: 500MG PER DAY
     Route: 048
     Dates: start: 20070501
  5. CONCERTA [Concomitant]
     Indication: ATTENTION DEFICIT/HYPERACTIVITY DISORDER
     Dosage: 54MG PER DAY
     Route: 048
     Dates: end: 20070508
  6. INSULIN [Concomitant]
     Indication: GESTATIONAL DIABETES
     Dosage: 54UNIT PER DAY
     Route: 030
     Dates: start: 20070501

REACTIONS (2)
  - GESTATIONAL DIABETES [None]
  - PREGNANCY INDUCED HYPERTENSION [None]
